FAERS Safety Report 23892066 (Version 1)
Quarter: 2024Q2

REPORT INFORMATION
  Report Type: Spontaneous
  Country: US (occurrence: None)
  Receive Date: 20240524
  Receipt Date: 20240524
  Transmission Date: 20240716
  Serious: No
  Sender: FDA-Public Use
  Company Number: US-ROCHE-3402124

PATIENT
  Sex: Male
  Weight: 98.972 kg

DRUGS (1)
  1. ACTEMRA [Suspect]
     Active Substance: TOCILIZUMAB
     Indication: Rheumatoid arthritis
     Dosage: 8MG/KG; TWO 400MG
     Route: 042
     Dates: start: 20230414

REACTIONS (3)
  - Back pain [Recovered/Resolved]
  - Urticaria [Unknown]
  - Groin pain [Unknown]

NARRATIVE: CASE EVENT DATE: 20230714
